FAERS Safety Report 16243559 (Version 1)
Quarter: 2019Q2

REPORT INFORMATION
  Report Type: Spontaneous
  Country: US (occurrence: US)
  Receive Date: 20190425
  Receipt Date: 20190425
  Transmission Date: 20190711
  Serious: Yes (Other)
  Sender: FDA-Public Use
  Company Number: None

PATIENT
  Age: 50 Year
  Sex: Female
  Weight: 92.4 kg

DRUGS (2)
  1. ATROPINE. [Concomitant]
     Active Substance: ATROPINE
     Dates: start: 20190424, end: 20190424
  2. IRINOTECAN HCL [Suspect]
     Active Substance: IRINOTECAN HYDROCHLORIDE
     Indication: COLON CANCER
     Dosage: ?          OTHER FREQUENCY:ONE TIME INFUSION;??
     Route: 041
     Dates: start: 20190424, end: 20190424

REACTIONS (5)
  - Dizziness [None]
  - Infusion related reaction [None]
  - Nausea [None]
  - Blepharospasm [None]
  - Muscle twitching [None]

NARRATIVE: CASE EVENT DATE: 20190424
